FAERS Safety Report 20597567 (Version 1)
Quarter: 2022Q1

REPORT INFORMATION
  Report Type: Spontaneous
  Country: US (occurrence: None)
  Receive Date: 20220315
  Receipt Date: 20220315
  Transmission Date: 20220423
  Serious: Yes (Hospitalization)
  Sender: FDA-Public Use
  Company Number: None

PATIENT
  Sex: Male

DRUGS (10)
  1. VIGABATRIN [Suspect]
     Active Substance: VIGABATRIN
     Indication: Infantile spasms
     Dosage: DISSOLVE 1 PACKET (500 MG) IN 10 ML OF WATER AND TAKE BY G-TUBE ROUTE TWICE DAILY
     Route: 048
     Dates: start: 20201027
  2. ACETAMINOPHEN [Concomitant]
     Active Substance: ACETAMINOPHEN
  3. CLARITIN [Concomitant]
  4. CLONAZEPAM [Concomitant]
     Active Substance: CLONAZEPAM
  5. FLINTSTONES CHW COMPLETE [Concomitant]
  6. FLONASE ALGY SPR [Concomitant]
  7. GABAPENTIN [Concomitant]
     Active Substance: GABAPENTIN
  8. PEPCID AC [Concomitant]
     Active Substance: FAMOTIDINE
  9. TOPIRAMATE [Concomitant]
     Active Substance: TOPIRAMATE
  10. ZYRTEC CHILD [Concomitant]

REACTIONS (1)
  - Hospitalisation [None]
